FAERS Safety Report 9380075 (Version 1)
Quarter: 2013Q2

REPORT INFORMATION
  Report Type: Spontaneous
  Country: FR (occurrence: None)
  Receive Date: 20130628
  Receipt Date: 20130628
  Transmission Date: 20140414
  Serious: Yes (Other)
  Sender: FDA-Public Use
  Company Number: 2013P1010105

PATIENT
  Sex: Female
  Weight: 2.98 kg

DRUGS (2)
  1. LEVETIRACETAM [Suspect]
     Route: 064
  2. LAMOTRIGINE [Concomitant]

REACTIONS (4)
  - Maternal drugs affecting foetus [None]
  - Premature baby [None]
  - Caesarean section [None]
  - Hypoglycaemia neonatal [None]
